FAERS Safety Report 8239549 (Version 3)
Quarter: 2013Q1

REPORT INFORMATION
  Report Type: Spontaneous
  Country: DE (occurrence: None)
  Receive Date: 20111103
  Receipt Date: 20121204
  Transmission Date: 20140127
  Serious: Yes (Death, Hospitalization)
  Sender: FDA-Public Use
  Company Number: DSA_47942_2011

PATIENT
  Age: 40 Year
  Sex: Female

DRUGS (5)
  1. BUPROPION HYDROCHLORIDE [Suspect]
     Indication: PRODUCT USED FOR UNKNOWN INDICATION
     Dosage: (300 MG, NOT THE PRESCRIBED AMOUNT ORAL)
     Route: 048
     Dates: start: 20111022, end: 20111022
  2. CANDESARTAN CILEXETIL [Suspect]
     Indication: PRODUCT USED FOR UNKNOWN INDICATION
     Dosage: (DF ORAL)
     Route: 048
     Dates: start: 20111022, end: 20111022
  3. METOCLOPRAMIDE HYDROCHLORIDE [Suspect]
     Indication: PRODUCT USED FOR UNKNOWN INDICATION
     Dosage: (DF ORAL)
     Route: 048
     Dates: start: 20111022, end: 20111022
  4. MAPROTILINE [Suspect]
     Route: 048
     Dates: start: 20111022, end: 20111022
  5. ABILIFY [Suspect]
     Dates: start: 20111022, end: 20111022

REACTIONS (11)
  - Intentional overdose [None]
  - Tachycardia [None]
  - Pupillary reflex impaired [None]
  - Cardiac arrest [None]
  - Completed suicide [None]
  - Bundle branch block right [None]
  - Hypothermia [None]
  - Hyperthermia [None]
  - Brain injury [None]
  - Aspiration [None]
  - Pulmonary embolism [None]
